FAERS Safety Report 14869675 (Version 12)
Quarter: 2020Q1

REPORT INFORMATION
  Report Type: Report from Study
  Country: CN (occurrence: CN)
  Receive Date: 20180509
  Receipt Date: 20200213
  Transmission Date: 20200409
  Serious: Yes (Hospitalization)
  Sender: FDA-Public Use
  Company Number: CN-ROCHE-2114826

PATIENT
  Age: 57 Year
  Sex: Male
  Weight: 62 kg

DRUGS (49)
  1. FOLIC ACID. [Concomitant]
     Active Substance: FOLIC ACID
     Indication: RHEUMATOID ARTHRITIS
     Route: 065
     Dates: start: 20171124
  2. PARECOXIB SODIUM. [Concomitant]
     Active Substance: PARECOXIB SODIUM
     Route: 065
     Dates: start: 20180508, end: 20180510
  3. AMBROXOL HYDROCHLORIDE [Concomitant]
     Active Substance: AMBROXOL HYDROCHLORIDE
     Route: 055
     Dates: start: 20180508, end: 20180511
  4. PEMETREXED. [Concomitant]
     Active Substance: PEMETREXED
     Dosage: THIRD CYCLE
     Route: 065
     Dates: start: 20180717
  5. INSULIN [Concomitant]
     Active Substance: INSULIN NOS
     Route: 065
     Dates: start: 20180507, end: 20180507
  6. COENZYME COMPLEX [Concomitant]
     Active Substance: UNSPECIFIED INGREDIENT
     Route: 065
     Dates: start: 20180508, end: 20180514
  7. GLUTAMINE [Concomitant]
     Active Substance: GLUTAMINE
     Route: 065
     Dates: start: 20180507, end: 20180507
  8. FUROSEMIDE. [Concomitant]
     Active Substance: FUROSEMIDE
     Route: 065
     Dates: start: 20180511, end: 20180511
  9. TOCILIZUMAB. [Suspect]
     Active Substance: TOCILIZUMAB
     Indication: RHEUMATOID ARTHRITIS
     Dosage: MOST RECENT DOSE OF TOCILIZUMAB PRIOR TO AE ONSET ON 13/APR/2018.
     Route: 058
     Dates: start: 20171124
  10. TEPRENONE [Concomitant]
     Active Substance: TEPRENONE
     Indication: RHEUMATOID ARTHRITIS
     Route: 065
     Dates: start: 20151019
  11. BICYCLOL [Concomitant]
     Active Substance: BICYCLOL
     Route: 065
     Dates: start: 20180213
  12. AMLODIPINE BESYLATE. [Concomitant]
     Active Substance: AMLODIPINE BESYLATE
     Indication: RHEUMATOID ARTHRITIS
     Route: 065
     Dates: start: 20180316
  13. CREATINE PHOSPHATE SODIUM [Concomitant]
     Active Substance: CREATINE
     Route: 065
     Dates: start: 20180508, end: 20180514
  14. INSULIN [Concomitant]
     Active Substance: INSULIN NOS
     Route: 065
     Dates: start: 20180508, end: 20180514
  15. PEMETREXED. [Concomitant]
     Active Substance: PEMETREXED
     Route: 065
     Dates: start: 20180530
  16. CARBOPLATIN. [Concomitant]
     Active Substance: CARBOPLATIN
     Dosage: THIRD CYCLE
     Route: 065
     Dates: start: 20180717
  17. ILAPRAZOLE [Concomitant]
     Active Substance: ILAPRAZOLE
     Route: 065
     Dates: start: 20180424, end: 20180424
  18. CEFOPERAZONE SODIUM [Concomitant]
     Active Substance: CEFOPERAZONE SODIUM
     Route: 065
     Dates: start: 20180506, end: 20180506
  19. CEFOPERAZONE SODIUM [Concomitant]
     Active Substance: CEFOPERAZONE SODIUM
     Route: 065
     Dates: start: 20180508, end: 20180513
  20. ATROPINE. [Concomitant]
     Active Substance: ATROPINE
     Route: 065
     Dates: start: 20180423, end: 20180423
  21. ALBUMIN [Concomitant]
     Active Substance: ALBUMIN HUMAN
     Route: 065
     Dates: start: 20180512, end: 20180512
  22. PLACEBO [Suspect]
     Active Substance: UNSPECIFIED INGREDIENT
     Indication: RHEUMATOID ARTHRITIS
     Dosage: ON 12/APR/2018, MOST RECENT DOSE PRIOR TO AE ONSET.?DATE OF MOST RECENT DOSE PRIOR TO SAE ONSET (ADE
     Route: 048
     Dates: start: 20171126
  23. METHYLPREDNISOLONE. [Concomitant]
     Active Substance: METHYLPREDNISOLONE
     Indication: RHEUMATOID ARTHRITIS
     Route: 048
     Dates: start: 20170810
  24. ALFACALCIDOL [Concomitant]
     Active Substance: ALFACALCIDOL
     Indication: RHEUMATOID ARTHRITIS
     Route: 065
     Dates: start: 20151009
  25. BICYCLOL [Concomitant]
     Active Substance: BICYCLOL
     Indication: RHEUMATOID ARTHRITIS
     Route: 065
     Dates: start: 20171221, end: 20180119
  26. PEMETREXED. [Concomitant]
     Active Substance: PEMETREXED
     Dosage: SECOND CYCLE
     Route: 065
     Dates: start: 20180623
  27. CARBOPLATIN. [Concomitant]
     Active Substance: CARBOPLATIN
     Dosage: SECOND CYCLE
     Route: 065
     Dates: start: 20180623
  28. ILAPRAZOLE [Concomitant]
     Active Substance: ILAPRAZOLE
     Route: 065
     Dates: start: 20180514, end: 20180514
  29. CEFOPERAZONE SODIUM [Concomitant]
     Active Substance: CEFOPERAZONE SODIUM
     Route: 065
     Dates: start: 20180507, end: 20180507
  30. ALBUMIN [Concomitant]
     Active Substance: ALBUMIN HUMAN
     Route: 065
     Dates: start: 20180509, end: 20180509
  31. ALBUMIN [Concomitant]
     Active Substance: ALBUMIN HUMAN
     Route: 065
     Dates: start: 20180511, end: 20180511
  32. DIACEREIN [Concomitant]
     Active Substance: DIACEREIN
     Indication: RHEUMATOID ARTHRITIS
     Route: 065
     Dates: start: 20170810
  33. CARBOPLATIN. [Concomitant]
     Active Substance: CARBOPLATIN
     Route: 065
     Dates: start: 20180530
  34. CREATINE PHOSPHATE SODIUM [Concomitant]
     Active Substance: CREATINE
     Route: 065
     Dates: start: 20180507, end: 20180507
  35. COENZYME COMPLEX [Concomitant]
     Active Substance: UNSPECIFIED INGREDIENT
     Route: 065
     Dates: start: 20180507, end: 20180507
  36. GLUCOSAMINE HYDROCHLORIDE [Concomitant]
     Active Substance: GLUCOSAMINE HYDROCHLORIDE
     Route: 065
     Dates: start: 20170810
  37. ILAPRAZOLE [Concomitant]
     Active Substance: ILAPRAZOLE
     Route: 065
     Dates: start: 20180425, end: 20180507
  38. TAZOBACTAM SODIUM [Concomitant]
     Active Substance: TAZOBACTAM SODIUM
     Route: 065
     Dates: start: 20180506, end: 20180506
  39. TAZOBACTAM SODIUM [Concomitant]
     Active Substance: TAZOBACTAM SODIUM
     Route: 065
     Dates: start: 20180507, end: 20180507
  40. LANSOPRAZOLE. [Concomitant]
     Active Substance: LANSOPRAZOLE
     Route: 065
     Dates: start: 20180507, end: 20180507
  41. LANSOPRAZOLE. [Concomitant]
     Active Substance: LANSOPRAZOLE
     Route: 065
     Dates: start: 20180508, end: 20180514
  42. AMINOCAPROIC ACID. [Concomitant]
     Active Substance: AMINOCAPROIC ACID
     Route: 065
     Dates: start: 20180507, end: 20180507
  43. FUROSEMIDE. [Concomitant]
     Active Substance: FUROSEMIDE
     Route: 065
     Dates: start: 20180509, end: 20180509
  44. FUROSEMIDE. [Concomitant]
     Active Substance: FUROSEMIDE
     Route: 065
     Dates: start: 20180512, end: 20180512
  45. BUDESONIDE. [Concomitant]
     Active Substance: BUDESONIDE
     Route: 065
     Dates: start: 20180508, end: 20180511
  46. TAZOBACTAM SODIUM [Concomitant]
     Active Substance: TAZOBACTAM SODIUM
     Route: 065
     Dates: start: 20180508, end: 20180513
  47. LIDOCAINE HYDROCHLORIDE. [Concomitant]
     Active Substance: LIDOCAINE HYDROCHLORIDE
     Route: 065
     Dates: start: 20180426, end: 20180426
  48. PARECOXIB SODIUM. [Concomitant]
     Active Substance: PARECOXIB SODIUM
     Route: 065
     Dates: start: 20180507, end: 20180507
  49. AMBROXOL HYDROCHLORIDE [Concomitant]
     Active Substance: AMBROXOL HYDROCHLORIDE
     Route: 042
     Dates: start: 20180508, end: 20180511

REACTIONS (1)
  - Lung adenocarcinoma [Not Recovered/Not Resolved]

NARRATIVE: CASE EVENT DATE: 201804
